FAERS Safety Report 19035564 (Version 2)
Quarter: 2021Q2

REPORT INFORMATION
  Report Type: Report from Study
  Country: ES (occurrence: ES)
  Receive Date: 20210320
  Receipt Date: 20210407
  Transmission Date: 20210717
  Serious: Yes (Hospitalization, Other)
  Sender: FDA-Public Use
  Company Number: ES-AMGEN-ESPNI2019159212

PATIENT
  Age: 65 Year
  Sex: Male
  Weight: 94.2 kg

DRUGS (5)
  1. PANITUMUMAB [Suspect]
     Active Substance: PANITUMUMAB
     Indication: COLON CANCER METASTATIC
     Dosage: 480 MILLIGRAM, Q2WK
     Route: 042
     Dates: start: 20190827
  2. OXALIPLATINE [Concomitant]
     Active Substance: OXALIPLATIN
     Dosage: 165.75 MILLIGRAM, Q2WK
     Route: 042
     Dates: start: 20190827, end: 20200428
  3. 5?FU [FLUOROURACIL] [Concomitant]
     Active Substance: FLUOROURACIL
     Dosage: 2340 MILLIGRAM, Q2WK
     Route: 042
     Dates: start: 20190827
  4. ACIDO FOLINICO [Concomitant]
     Active Substance: LEUCOVORIN CALCIUM
     Dosage: 780 MILLIGRAM, Q2WK
     Route: 042
     Dates: start: 20190827
  5. 5?FU [FLUOROURACIL] [Concomitant]
     Active Substance: FLUOROURACIL
     Dosage: 780 MILLIGRAM, Q2WK
     Route: 040
     Dates: start: 20190827

REACTIONS (23)
  - Erythema [Recovered/Resolved]
  - Skin toxicity [Recovered/Resolved]
  - Skin toxicity [Recovered/Resolved]
  - Conjunctivitis [Recovered/Resolved]
  - Acne [Recovered/Resolved]
  - Skin toxicity [Recovered/Resolved]
  - Conjunctivitis [Recovered/Resolved]
  - Conjunctivitis [Recovered/Resolved]
  - Dry skin [Recovering/Resolving]
  - Ulcerative keratitis [Not Recovered/Not Resolved]
  - Skin toxicity [Recovering/Resolving]
  - Endophthalmitis [Not Recovered/Not Resolved]
  - Rash [Not Recovered/Not Resolved]
  - Conjunctivitis [Recovered/Resolved]
  - Conjunctivitis [Recovered/Resolved]
  - Eye operation [Recovered/Resolved with Sequelae]
  - Conjunctivitis [Recovered/Resolved]
  - Rash [Recovered/Resolved]
  - Skin toxicity [Recovered/Resolved]
  - Rash [Recovering/Resolving]
  - Rash [Recovered/Resolved]
  - Conjunctivitis [Recovered/Resolved]
  - Conjunctivitis [Recovered/Resolved]

NARRATIVE: CASE EVENT DATE: 20190907
